FAERS Safety Report 21759285 (Version 1)
Quarter: 2022Q4

REPORT INFORMATION
  Report Type: Other
  Country: US (occurrence: US)
  Receive Date: 20221221
  Receipt Date: 20221221
  Transmission Date: 20230113
  Serious: Yes (Other)
  Sender: FDA-Public Use
  Company Number: US-BoehringerIngelheim-2022-BI-208025

PATIENT

DRUGS (1)
  1. ALTEPLASE [Suspect]
     Active Substance: ALTEPLASE
     Indication: Pulmonary embolism
     Dosage: PULSE SPRAYS OF 2 MILLIGRAM (MG) RECOMBINANT TISSUE PLASMINOGEN ACTIVATOR (R-TPA) INTO EACH LUNG (DI
     Route: 065

REACTIONS (4)
  - Embolism [Unknown]
  - Device related thrombosis [Unknown]
  - Retroperitoneal haemorrhage [Unknown]
  - Haemoglobin decreased [Unknown]
